FAERS Safety Report 6684057-3 (Version None)
Quarter: 2010Q2

REPORT INFORMATION
  Report Type: 
  Country: None (occurrence: None)
  Receive Date: 20100416
  Receipt Date: 20100409
  Transmission Date: 20101027
  Serious: No
  Sender: FDA-Public Use
  Company Number: B0642390A

PATIENT
  Sex: Female
  Weight: 57 kg

DRUGS (5)
  1. RELENZA [Suspect]
     Indication: INFLUENZA
     Dosage: 20MG PER DAY
     Route: 055
     Dates: start: 20100205, end: 20100209
  2. UNKNOWN DRUG [Concomitant]
     Route: 048
     Dates: start: 20100205, end: 20100209
  3. MEDICON [Concomitant]
     Indication: ANTITUSSIVE THERAPY
     Dosage: 45MG PER DAY
     Route: 048
     Dates: start: 20100205, end: 20100209
  4. KENTAN [Concomitant]
     Indication: ARTHRALGIA
     Dosage: 180MG PER DAY
     Route: 048
     Dates: start: 20100205, end: 20100209
  5. CALONAL [Concomitant]
     Indication: ANTIPYRESIS
     Route: 065
     Dates: start: 20100205, end: 20100209

REACTIONS (1)
  - DRUG EXPOSURE DURING PREGNANCY [None]
